FAERS Safety Report 6478087-4 (Version None)
Quarter: 2009Q4

REPORT INFORMATION
  Report Type: 
  Country: None (occurrence: None)
  Receive Date: 20091202
  Receipt Date: 20091116
  Transmission Date: 20100525
  Serious: Yes (Hospitalization)
  Sender: FDA-Public Use
  Company Number: 1000010278

PATIENT
  Age: 77 Year
  Sex: Female

DRUGS (5)
  1. NEBIVOLOL HCL [Suspect]
     Dosage: ORAL
     Route: 048
     Dates: end: 20090519
  2. APROVEL [Concomitant]
  3. LASILIX [Concomitant]
  4. ZANIDIP [Concomitant]
  5. ALLOPURINOL [Concomitant]

REACTIONS (2)
  - DERMATITIS [None]
  - DERMATITIS EXFOLIATIVE [None]
